FAERS Safety Report 13942091 (Version 1)
Quarter: 2017Q3

REPORT INFORMATION
  Report Type: Spontaneous
  Country: NL (occurrence: NL)
  Receive Date: 20170906
  Receipt Date: 20170906
  Transmission Date: 20171127
  Serious: Yes (Hospitalization)
  Sender: FDA-Public Use
  Company Number: NL-ELI_LILLY_AND_COMPANY-NL201709001246

PATIENT
  Age: 56 Year
  Sex: Male

DRUGS (2)
  1. OLARATUMAB [Suspect]
     Active Substance: OLARATUMAB
     Indication: LIPOSARCOMA
     Dosage: 190 MG/19 ML, UNKNOWN
     Route: 065
  2. DEXAMETHASONE. [Concomitant]
     Active Substance: DEXAMETHASONE
     Indication: PREMEDICATION
     Route: 065

REACTIONS (5)
  - Rash generalised [Unknown]
  - Chest pain [Unknown]
  - Blood pressure decreased [Unknown]
  - Off label use [Unknown]
  - Dyspnoea [Unknown]
